FAERS Safety Report 11565571 (Version 1)
Quarter: 2015Q3

REPORT INFORMATION
  Report Type: Spontaneous
  Country: US (occurrence: US)
  Receive Date: 20150916
  Receipt Date: 20150916
  Transmission Date: 20151125
  Serious: No
  Sender: FDA-Public Use
  Company Number: US-ELI_LILLY_AND_COMPANY-US200905000679

PATIENT
  Age: 74 Year
  Sex: Female

DRUGS (20)
  1. FORTEO [Suspect]
     Active Substance: TERIPARATIDE
     Dosage: 20 UG, DAILY (1/D)
     Dates: start: 20090422
  2. AVALIDE [Concomitant]
     Active Substance: HYDROCHLOROTHIAZIDE\IRBESARTAN
  3. METOLAZONE. [Concomitant]
     Active Substance: METOLAZONE
  4. AMBIEN [Concomitant]
     Active Substance: ZOLPIDEM TARTRATE
  5. OMEGA 3 [Concomitant]
     Active Substance: OMEGA-3 FATTY ACIDS
  6. PRILOSEC [Concomitant]
     Active Substance: OMEPRAZOLE MAGNESIUM
  7. NORVASC [Concomitant]
     Active Substance: AMLODIPINE BESYLATE
  8. RYTHMOL [Concomitant]
     Active Substance: PROPAFENONE HYDROCHLORIDE
  9. SYNTHROID [Concomitant]
     Active Substance: LEVOTHYROXINE SODIUM
  10. TYLENOL [Concomitant]
     Active Substance: ACETAMINOPHEN
  11. CITRUCEL [Concomitant]
     Active Substance: METHYLCELLULOSE (4000 MPA.S)
  12. PLAQUENIL [Concomitant]
     Active Substance: HYDROXYCHLOROQUINE SULFATE
  13. PREDNISONE. [Concomitant]
     Active Substance: PREDNISONE
  14. CLARINEX [Concomitant]
     Active Substance: DESLORATADINE
  15. KLOR-CON [Concomitant]
     Active Substance: POTASSIUM CHLORIDE
  16. MUCINEX [Concomitant]
     Active Substance: GUAIFENESIN
  17. COUMADIN [Concomitant]
     Active Substance: WARFARIN SODIUM
  18. HYDROCHLOROTHIAZIDE. [Concomitant]
     Active Substance: HYDROCHLOROTHIAZIDE
  19. LOMOTIL [Concomitant]
     Active Substance: ATROPINE SULFATE\DIPHENOXYLATE HYDROCHLORIDE
  20. LASIX [Concomitant]
     Active Substance: FUROSEMIDE

REACTIONS (1)
  - International normalised ratio increased [Not Recovered/Not Resolved]

NARRATIVE: CASE EVENT DATE: 200904
